FAERS Safety Report 14747359 (Version 1)
Quarter: 2018Q2

REPORT INFORMATION
  Report Type: Spontaneous
  Country: US (occurrence: US)
  Receive Date: 20180411
  Receipt Date: 20180411
  Transmission Date: 20180711
  Serious: No
  Sender: FDA-Public Use
  Company Number: US-MYLANLABS-2018M1017531

PATIENT
  Sex: Female
  Weight: 61 kg

DRUGS (3)
  1. PRUDOXIN [Suspect]
     Active Substance: DOXEPIN HYDROCHLORIDE
     Indication: NEUROPATHY PERIPHERAL
  2. PRUDOXIN [Suspect]
     Active Substance: DOXEPIN HYDROCHLORIDE
     Indication: PRURITUS
     Dosage: UNK
     Route: 061
  3. GABAPENTIN. [Concomitant]
     Active Substance: GABAPENTIN
     Indication: PRODUCT USED FOR UNKNOWN INDICATION

REACTIONS (2)
  - No adverse event [Unknown]
  - Product use in unapproved indication [Recovering/Resolving]
